FAERS Safety Report 4933563-8 (Version None)
Quarter: 2006Q1

REPORT INFORMATION
  Report Type: 
  Country: None (occurrence: None)
  Receive Date: 20060306
  Receipt Date: 20060228
  Transmission Date: 20060701
  Serious: Yes (Other)
  Sender: FDA-Public Use
  Company Number: CH-JNJFOC-20060300209

PATIENT
  Sex: Female

DRUGS (2)
  1. REMICADE [Suspect]
     Dosage: 2ND INFUSION
     Route: 042
  2. REMICADE [Suspect]
     Indication: PSORIASIS
     Route: 042

REACTIONS (7)
  - ASTHENIA [None]
  - CHILLS [None]
  - DERMATITIS EXFOLIATIVE GENERALISED [None]
  - MALAISE [None]
  - PAIN OF SKIN [None]
  - RASH [None]
  - WEIGHT DECREASED [None]
